FAERS Safety Report 18488469 (Version 2)
Quarter: 2021Q2

REPORT INFORMATION
  Report Type: Spontaneous
  Country: US (occurrence: US)
  Receive Date: 20201110
  Receipt Date: 20210421
  Transmission Date: 20210717
  Serious: Yes (Other)
  Sender: FDA-Public Use
  Company Number: US-AUROBINDO-AUR-APL-2020-055338

PATIENT
  Sex: Female

DRUGS (1)
  1. TRANEXAMIC ACID INJECTION [Suspect]
     Active Substance: TRANEXAMIC ACID
     Indication: PRODUCT USED FOR UNKNOWN INDICATION
     Dosage: UNK
     Route: 065

REACTIONS (8)
  - Ventricular tachycardia [Unknown]
  - Back pain [Unknown]
  - Haemodynamic instability [Unknown]
  - Tetany [Unknown]
  - Agitation [Unknown]
  - Status epilepticus [Unknown]
  - Medication error [Unknown]
  - Muscle spasms [Unknown]
